FAERS Safety Report 12637374 (Version 1)
Quarter: 2016Q3

REPORT INFORMATION
  Report Type: Spontaneous
  Country: US (occurrence: US)
  Receive Date: 20160809
  Receipt Date: 20160809
  Transmission Date: 20161109
  Serious: No
  Sender: FDA-Public Use
  Company Number: US-BEH-2016058555

PATIENT
  Sex: Male
  Weight: 108 kg

DRUGS (18)
  1. PRIVIGEN [Suspect]
     Active Substance: HUMAN IMMUNOGLOBULIN G
     Route: 042
  2. SODIUM CHLORIDE. [Concomitant]
     Active Substance: SODIUM CHLORIDE
  3. DIPHENHYDRAMINE. [Concomitant]
     Active Substance: DIPHENHYDRAMINE
  4. HEPARIN [Concomitant]
     Active Substance: HEPARIN SODIUM
     Dosage: 10 UNITS/ML
  5. NORMAL SALINE [Concomitant]
     Active Substance: SODIUM CHLORIDE
  6. MULTIVITAMIN 50 PLUS [Concomitant]
  7. ANDROGEL [Concomitant]
     Active Substance: TESTOSTERONE
     Dosage: 1.25 G(1%) GEL MD PMP
  8. METFORMIN  HCL [Concomitant]
     Active Substance: METFORMIN HYDROCHLORIDE
  9. PRIVIGEN [Suspect]
     Active Substance: HUMAN IMMUNOGLOBULIN G
     Route: 042
  10. ACETAMINOPHEN. [Concomitant]
     Active Substance: ACETAMINOPHEN
  11. LIDOCAINE/PRILOCAINE [Concomitant]
     Active Substance: LIDOCAINE\PRILOCAINE
  12. EPIPEN AUTOINJECTOR [Concomitant]
     Dosage: AUTOINJECTOR
  13. PRILOSEC [Concomitant]
     Active Substance: OMEPRAZOLE MAGNESIUM
  14. PRIVIGEN [Suspect]
     Active Substance: HUMAN IMMUNOGLOBULIN G
     Indication: CHRONIC INFLAMMATORY DEMYELINATING POLYRADICULONEUROPATHY
     Route: 042
  15. PRIVIGEN [Suspect]
     Active Substance: HUMAN IMMUNOGLOBULIN G
     Route: 042
  16. CYMBALTA [Concomitant]
     Active Substance: DULOXETINE HYDROCHLORIDE
     Dosage: DR
  17. LISINOPRIL. [Concomitant]
     Active Substance: LISINOPRIL
  18. ZYRTEC [Concomitant]
     Active Substance: CETIRIZINE HYDROCHLORIDE

REACTIONS (2)
  - Headache [Unknown]
  - Feeling abnormal [Unknown]
